FAERS Safety Report 8356884-8 (Version None)
Quarter: 2012Q2

REPORT INFORMATION
  Report Type: 
  Country: None (occurrence: None)
  Receive Date: 20120514
  Receipt Date: 20120507
  Transmission Date: 20120825
  Serious: Yes (Hospitalization)
  Sender: FDA-Public Use
  Company Number: TW-PFIZER INC-2012079960

PATIENT
  Age: 54 Year
  Sex: Female
  Weight: 58.4 kg

DRUGS (12)
  1. ALOXI [Concomitant]
     Indication: PROPHYLAXIS OF NAUSEA AND VOMITING
     Dosage: UNK
     Dates: start: 20120303, end: 20120303
  2. ULTRACET [Concomitant]
     Indication: SPONDYLOLISTHESIS
     Dosage: UNK
     Dates: start: 20111206
  3. CYTOSAR-U [Suspect]
     Indication: NON-HODGKIN'S LYMPHOMA
     Dosage: 3000 MG, 1X/DAY
     Route: 042
     Dates: start: 20120307
  4. VEPESID [Suspect]
     Indication: NON-HODGKIN'S LYMPHOMA
     Dosage: 65 MG, 1X/DAY
     Route: 042
     Dates: start: 20120303
  5. SENOKOT [Concomitant]
     Indication: CONSTIPATION
     Dosage: UNK
     Dates: start: 20111206
  6. NORVASC [Concomitant]
     Indication: HYPERTENSION
     Dosage: UNK
     Dates: start: 20060101
  7. CHLORHEXIDINE [Concomitant]
     Indication: PROPHYLAXIS
     Dosage: UNK
     Dates: start: 20110802
  8. SOLU-MEDROL [Suspect]
     Indication: NON-HODGKIN'S LYMPHOMA
     Dosage: 500 MG, 1X/DAY
     Route: 042
     Dates: start: 20120303
  9. RITUXAN [Suspect]
     Indication: NON-HODGKIN'S LYMPHOMA
     Dosage: 577.5 MG, CYCLIC, DAY 1 OF EACH 28 DAY CYCLE
     Route: 042
     Dates: start: 20120105, end: 20120202
  10. VITAMIN B6 [Concomitant]
     Indication: NEUROPATHY PERIPHERAL
     Dosage: UNK
     Dates: start: 20111206
  11. INOTUZUMAB OZOGAMICIN [Suspect]
     Indication: NON-HODGKIN'S LYMPHOMA
     Dosage: 2.77 MG, CYCLIC, DAY 2 OF EACH 28 DAY CYCLE
     Route: 042
     Dates: start: 20120106, end: 20120203
  12. ABIPLATIN [Suspect]
     Indication: NON-HODGKIN'S LYMPHOMA
     Dosage: 40 MG, 1X/DAY
     Route: 042
     Dates: start: 20120303

REACTIONS (1)
  - FEBRILE NEUTROPENIA [None]
